FAERS Safety Report 18365648 (Version 3)
Quarter: 2020Q4

REPORT INFORMATION
  Report Type: Spontaneous
  Country: DE (occurrence: DE)
  Receive Date: 20201009
  Receipt Date: 20201111
  Transmission Date: 20210114
  Serious: No
  Sender: FDA-Public Use
  Company Number: DE-PFIZER INC-2020386457

PATIENT
  Sex: Female

DRUGS (1)
  1. SAYANA [Suspect]
     Active Substance: MEDROXYPROGESTERONE
     Dosage: UNK (104 MG/0.65ML)

REACTIONS (5)
  - Incorrect dose administered by device [Unknown]
  - Device issue [Unknown]
  - Device leakage [Unknown]
  - Off label use [Unknown]
  - Intentional product use issue [Unknown]
